FAERS Safety Report 26208015 (Version 1)
Quarter: 2025Q4

REPORT INFORMATION
  Report Type: Spontaneous
  Country: EU (occurrence: EU)
  Receive Date: 20251229
  Receipt Date: 20251229
  Transmission Date: 20260118
  Serious: Yes (Other)
  Sender: MYLAN
  Company Number: None

PATIENT
  Age: 32 Year
  Sex: Male
  Weight: 90 kg

DRUGS (8)
  1. ALPRAZOLAM [Suspect]
     Active Substance: ALPRAZOLAM
     Indication: Product used for unknown indication
     Dosage: UNK, AN UNKNOWN AMOUNT OF MEDICATION WAS TAKEN
     Route: 061
  2. ALPRAZOLAM [Suspect]
     Active Substance: ALPRAZOLAM
     Dosage: UNK, AN UNKNOWN AMOUNT OF MEDICATION WAS TAKEN
     Route: 048
  3. ALPRAZOLAM [Suspect]
     Active Substance: ALPRAZOLAM
     Dosage: UNK, AN UNKNOWN AMOUNT OF MEDICATION WAS TAKEN
     Route: 048
  4. ALPRAZOLAM [Suspect]
     Active Substance: ALPRAZOLAM
     Dosage: UNK, AN UNKNOWN AMOUNT OF MEDICATION WAS TAKEN
     Route: 061
  5. ALCOHOL [Concomitant]
     Active Substance: ALCOHOL
     Dosage: UNK
  6. ALCOHOL [Concomitant]
     Active Substance: ALCOHOL
     Dosage: UNK
     Route: 065
  7. ALCOHOL [Concomitant]
     Active Substance: ALCOHOL
     Dosage: UNK
     Route: 065
  8. ALCOHOL [Concomitant]
     Active Substance: ALCOHOL
     Dosage: UNK

REACTIONS (4)
  - Suicide attempt [Unknown]
  - Toxicity to various agents [Unknown]
  - Somnolence [Unknown]
  - Balance disorder [Unknown]

NARRATIVE: CASE EVENT DATE: 20211022
